FAERS Safety Report 8074276-6 (Version None)
Quarter: 2012Q1

REPORT INFORMATION
  Report Type: 
  Country: None (occurrence: None)
  Receive Date: 20120126
  Receipt Date: 20120119
  Transmission Date: 20120608
  Serious: Yes (Life-Threatening, Disabling, Other)
  Sender: FDA-Public Use
  Company Number: US-NAPPMUNDI-USA-2010-0049143

PATIENT
  Age: 23 Year
  Sex: Male

DRUGS (1)
  1. OXYCONTIN [Suspect]
     Indication: DRUG ABUSE
     Dosage: UNK

REACTIONS (11)
  - DRUG ABUSE [None]
  - ABASIA [None]
  - CEREBROVASCULAR ACCIDENT [None]
  - DRUG DEPENDENCE [None]
  - MYOCARDIAL INFARCTION [None]
  - APHASIA [None]
  - COMA [None]
  - OVERDOSE [None]
  - RESPIRATORY ARREST [None]
  - PARALYSIS [None]
  - QUADRIPLEGIA [None]
